FAERS Safety Report 24081164 (Version 1)
Quarter: 2024Q3

REPORT INFORMATION
  Report Type: Spontaneous
  Country: US (occurrence: US)
  Receive Date: 20240711
  Receipt Date: 20240711
  Transmission Date: 20241016
  Serious: No
  Sender: KRAMER LABORATORIES
  Company Number: US-KRAMERLABS-2023-US-034060

PATIENT
  Age: 29 Year
  Sex: Female

DRUGS (1)
  1. KETOCONAZOLE [Suspect]
     Active Substance: KETOCONAZOLE
     Indication: Psoriasis

REACTIONS (4)
  - Drug ineffective [Unknown]
  - Pruritus [Unknown]
  - Erythema [Unknown]
  - Off label use [Unknown]
